FAERS Safety Report 8809390 (Version 4)
Quarter: 2012Q4

REPORT INFORMATION
  Report Type: Report from Study
  Country: US (occurrence: US)
  Receive Date: 20120926
  Receipt Date: 20121121
  Transmission Date: 20130627
  Serious: Yes (Hospitalization)
  Sender: FDA-Public Use
  Company Number: US-JNJFOC-20120908766

PATIENT
  Age: 6 Year
  Sex: Male
  Weight: 21.6 kg

DRUGS (1)
  1. REMICADE [Suspect]
     Indication: COLITIS ULCERATIVE
     Route: 042
     Dates: start: 20120327, end: 2012

REACTIONS (2)
  - Colitis ulcerative [Recovered/Resolved]
  - Appendicitis [Recovered/Resolved]
